FAERS Safety Report 6450672-5 (Version None)
Quarter: 2009Q4

REPORT INFORMATION
  Report Type: 
  Country: None (occurrence: None)
  Receive Date: 20091120
  Receipt Date: 20091120
  Transmission Date: 20100525
  Serious: Yes (Death, Life-Threatening, Hospitalization)
  Sender: FDA-Public Use
  Company Number: None

PATIENT
  Age: 51 Year
  Sex: Female

DRUGS (2)
  1. ARIXTRA [Suspect]
     Indication: DEEP VEIN THROMBOSIS
     Dosage: SQ
     Route: 058
  2. ARIXTRA [Suspect]
     Indication: PULMONARY EMBOLISM
     Dosage: SQ
     Route: 058

REACTIONS (1)
  - HAEMORRHAGE INTRACRANIAL [None]
